FAERS Safety Report 15228207 (Version 1)
Quarter: 2018Q3

REPORT INFORMATION
  Report Type: Spontaneous
  Country: US (occurrence: US)
  Receive Date: 20180801
  Receipt Date: 20180801
  Transmission Date: 20181010
  Serious: Yes (Other)
  Sender: FDA-Public Use
  Company Number: US-TEVA-2018-US-934826

PATIENT
  Age: 32 Year
  Sex: Female

DRUGS (3)
  1. LOPERAMIDE [Suspect]
     Active Substance: LOPERAMIDE
     Indication: DRUG THERAPY ENHANCEMENT
  2. LOPERAMIDE [Suspect]
     Active Substance: LOPERAMIDE
     Indication: DRUG ABUSE
     Dosage: UP TO 200 TABLETS DAILY
     Route: 048
  3. LOPERAMIDE [Suspect]
     Active Substance: LOPERAMIDE
     Indication: INTENTIONAL OVERDOSE

REACTIONS (5)
  - Sinus bradycardia [Unknown]
  - Intentional overdose [Unknown]
  - Electrocardiogram QT prolonged [Unknown]
  - Ventricular tachycardia [Unknown]
  - Drug abuse [Unknown]
